FAERS Safety Report 25366681 (Version 1)
Quarter: 2025Q2

REPORT INFORMATION
  Report Type: Spontaneous
  Country: US (occurrence: US)
  Receive Date: 20250528
  Receipt Date: 20250528
  Transmission Date: 20250716
  Serious: Yes (Other)
  Sender: AUROBINDO
  Company Number: US-AUROBINDO-AUR-APL-2022-031103

PATIENT
  Age: 61 Year
  Sex: Female

DRUGS (3)
  1. PREDNISONE [Suspect]
     Active Substance: PREDNISONE
     Indication: Ototoxicity
     Dosage: 40 MILLIGRAM, ONCE A DAY
     Route: 065
  2. PREDNISONE [Suspect]
     Active Substance: PREDNISONE
     Dosage: 20 MILLIGRAM, ONCE A DAY
     Route: 065
  3. METHIMAZOLE [Concomitant]
     Active Substance: METHIMAZOLE
     Indication: Graves^ disease
     Route: 065

REACTIONS (1)
  - Drug ineffective [Unknown]
